FAERS Safety Report 5150704-0 (Version None)
Quarter: 2006Q4

REPORT INFORMATION
  Report Type: 
  Country: None (occurrence: None)
  Receive Date: 20061110
  Receipt Date: 20061110
  Transmission Date: 20070319
  Serious: Yes (Other)
  Sender: FDA-Public Use
  Company Number: None

PATIENT
  Age: 55 Year
  Sex: Male
  Weight: 74.8435 kg

DRUGS (1)
  1. ACETAMINOPHEN [Suspect]
     Indication: JOINT DISLOCATION
     Dosage: ABOUT TWO   ABOUT TWICE/DAY
     Dates: start: 20061006, end: 20061106

REACTIONS (2)
  - DYSURIA [None]
  - PHARMACEUTICAL PRODUCT COMPLAINT [None]
